FAERS Safety Report 6975065-3 (Version None)
Quarter: 2010Q3

REPORT INFORMATION
  Report Type: 
  Country: None (occurrence: None)
  Receive Date: 20100910
  Receipt Date: 20090127
  Transmission Date: 20110219
  Serious: No
  Sender: FDA-Public Use
  Company Number: US-WYE-H07959909

PATIENT
  Age: 46 Year
  Sex: Female
  Weight: 53.57 kg

DRUGS (2)
  1. ADVIL PM [Suspect]
     Indication: NUTRITIONAL SUPPORT
     Route: 048
     Dates: start: 20090125, end: 20090126
  2. LEVOTHYROXINE SODIUM [Concomitant]

REACTIONS (1)
  - DYSPHAGIA [None]
